FAERS Safety Report 4286362-7 (Version None)
Quarter: 2004Q1

REPORT INFORMATION
  Report Type: 
  Country: None (occurrence: None)
  Receive Date: 20040121
  Receipt Date: 20030225
  Transmission Date: 20041129
  Serious: Yes (Hospitalization)
  Sender: FDA-Public Use
  Company Number: A03200300393

PATIENT
  Age: 81 Year
  Sex: Male
  Weight: 86.1834 kg

DRUGS (8)
  1. PLAVIX [Suspect]
     Indication: ANGINA PECTORIS
     Dosage: 75 MG QD - ORAL
     Route: 048
     Dates: start: 20010801, end: 20030201
  2. PLAVIX [Suspect]
     Indication: CORONARY ARTERY DISEASE
     Dosage: 75 MG QD - ORAL
     Route: 048
     Dates: start: 20010801, end: 20030201
  3. GLYCERYL TRINITRATE [Concomitant]
  4. ISOSORBIDE MONONITRATE [Concomitant]
  5. CELECOXIB [Concomitant]
  6. PANTOPRAZOLE SODIUM [Concomitant]
  7. ACETYLSALICYLIC ACID SRT [Concomitant]
  8. PARACETAMOL [Concomitant]

REACTIONS (4)
  - ANGINA PECTORIS [None]
  - CORONARY ARTERY THROMBOSIS [None]
  - PRURITUS GENERALISED [None]
  - SYNCOPE VASOVAGAL [None]
